FAERS Safety Report 14438620 (Version 4)
Quarter: 2019Q2

REPORT INFORMATION
  Report Type: Spontaneous
  Country: ES (occurrence: ES)
  Receive Date: 20180125
  Receipt Date: 20190403
  Transmission Date: 20190711
  Serious: Yes (Hospitalization, Other)
  Sender: FDA-Public Use
  Company Number: ES-AUROBINDO-AUR-APL-2018-003027

PATIENT

DRUGS (21)
  1. CELLCEPT [Suspect]
     Active Substance: MYCOPHENOLATE MOFETIL\MYCOPHENOLATE MOFETIL HYDROCHLORIDE
     Dosage: 2000 MILLIGRAM (500 MG, 4X/DAY (QID))
     Route: 048
     Dates: start: 2017
  2. PREDNISONE. [Suspect]
     Active Substance: PREDNISONE
     Dosage: 20 MILLIGRAM, ONCE A DAY
     Route: 048
     Dates: start: 2017
  3. PARACETAMOL [Concomitant]
     Active Substance: ACETAMINOPHEN
     Indication: PRODUCT USED FOR UNKNOWN INDICATION
     Dosage: AT 500 MG (2 AT BREAKFAST, 2 AT LUNCH, 2 AT DINNER), AS NEEDED
     Route: 048
  4. PROGRAF [Suspect]
     Active Substance: TACROLIMUS\TACROLIMUS ANHYDROUS
     Indication: IMMUNOSUPPRESSANT DRUG THERAPY
     Dosage: 4.5 MILLIGRAM, TWO TIMES A DAY(4.5 MG BEFORE BREAKFAST AND 4 MG BEFORE DINNER )
     Route: 048
     Dates: start: 2017
  5. SEPTRIN [Suspect]
     Active Substance: SULFAMETHOXAZOLE\TRIMETHOPRIM
     Indication: ANTIFUNGAL PROPHYLAXIS
     Dosage: ONCE DAILY (QD) 400 MG/80 MG (1)
     Route: 048
     Dates: start: 20170707
  6. ZITROMAX [Suspect]
     Active Substance: AZITHROMYCIN
     Dosage: UNK
     Route: 048
  7. DEXKETOPROFEN [Concomitant]
     Active Substance: DEXKETOPROFEN
     Indication: PRODUCT USED FOR UNKNOWN INDICATION
     Dosage: AT 25 MG (1 AT BREAKFAST, 1 AT LUNCH, 1 AT DINNER ), AS NEEDED
     Route: 048
  8. PREDNISONE. [Suspect]
     Active Substance: PREDNISONE
     Dosage: 60 MILLIGRAM, ONCE A DAY (30 MG, 2X/DAY (AT BREAKFAST TIME))
     Route: 048
  9. SEPTRIN [Suspect]
     Active Substance: SULFAMETHOXAZOLE\TRIMETHOPRIM
     Indication: ANTIFUNGAL PROPHYLAXIS
     Dosage: UNK, ONCE A DAY
     Route: 048
  10. VALGANCICLOVIR FILM COATED TABLETS [Suspect]
     Active Substance: VALGANCICLOVIR
     Indication: ANTIVIRAL PROPHYLAXIS
  11. CELLCEPT [Suspect]
     Active Substance: MYCOPHENOLATE MOFETIL\MYCOPHENOLATE MOFETIL HYDROCHLORIDE
     Indication: IMMUNOSUPPRESSION
     Dosage: 1000 MG, 2X/DAY (BID), 500 MG, 4X/DAY (2 AT BREAKFAST AND 2 AT DINNER)
     Route: 048
     Dates: start: 20170703, end: 2017
  12. PREDNISONE. [Suspect]
     Active Substance: PREDNISONE
     Indication: IMMUNOSUPPRESSANT DRUG THERAPY
     Dosage: 20 MILLIGRAM, ONCE A DAY
     Route: 048
     Dates: start: 20170703
  13. ZITROMAX [Suspect]
     Active Substance: AZITHROMYCIN
     Indication: IMMUNOMODULATORY THERAPY
     Dosage: 250 MILLIGRAM (250 MG, AT LUNCH TIME EVERY 48 HOURS)
     Route: 048
     Dates: start: 20170801
  14. CALCIUM W/ERGOCALCIFEROL [Concomitant]
     Indication: PRODUCT USED FOR UNKNOWN INDICATION
     Dosage: UNK UNK, 2X/DAY (BID) (2)
     Route: 048
  15. PREDNISONE. [Suspect]
     Active Substance: PREDNISONE
     Indication: IMMUNOSUPPRESSION
     Dosage: 30 MG, 2X/DAY (BID)
     Route: 048
     Dates: start: 20170101
  16. LORAZEPAM. [Concomitant]
     Active Substance: LORAZEPAM
     Indication: PRODUCT USED FOR UNKNOWN INDICATION
     Dosage: 1 MILLIGRAM, ONCE A DAY (1 MG, 1X/DAY (AT BEDTIME))
     Route: 048
  17. VALGANCICLOVIR FILM COATED TABLETS [Suspect]
     Active Substance: VALGANCICLOVIR
     Indication: ANTIVIRAL PROPHYLAXIS
     Dosage: 900 MILLIGRAM, ONCE A DAY
     Route: 048
     Dates: start: 20170707
  18. PROGRAF [Suspect]
     Active Substance: TACROLIMUS\TACROLIMUS ANHYDROUS
     Indication: IMMUNOSUPPRESSION
     Dosage: 5 MG, 2X/DAY (1 IN THE MORNING AND 1 BEFORE DINNER)
     Route: 048
     Dates: start: 20170704
  19. ABELCET [Concomitant]
     Active Substance: AMPHOTERICIN B\DIMYRISTOYLPHOSPHATIDYLCHOLINE, DL-\DIMYRISTOYLPHOSPHATIDYLGLYCEROL, DL-
     Indication: PRODUCT USED FOR UNKNOWN INDICATION
     Dosage: 50 MG, WEEKLY (ON MONDAYS IN THE AFTERNOON)
     Route: 055
  20. CALCIUM W/ERGOCALCIFEROL [Concomitant]
     Dosage: 1 DOSAGE FORM, TWO TIMES A DAY
     Route: 048
  21. OMEPRAZOLE. [Concomitant]
     Active Substance: OMEPRAZOLE
     Indication: PRODUCT USED FOR UNKNOWN INDICATION
     Dosage: 20 MILLIGRAM, ONCE A DAY (20 MG, 1X/DAY (AT BREAKFAST))
     Route: 048

REACTIONS (9)
  - Paraesthesia [Unknown]
  - Bone pain [Unknown]
  - Flank pain [Unknown]
  - Gait disturbance [Unknown]
  - Myalgia [Unknown]
  - Large intestinal ulcer [Unknown]
  - Hypoaesthesia [Unknown]
  - Pyrexia [Not Recovered/Not Resolved]
  - Fatigue [Unknown]

NARRATIVE: CASE EVENT DATE: 2017
